FAERS Safety Report 11950462 (Version 1)
Quarter: 2016Q1

REPORT INFORMATION
  Report Type: Spontaneous
  Country: US (occurrence: US)
  Receive Date: 20160126
  Receipt Date: 20160126
  Transmission Date: 20160526
  Serious: No
  Sender: FDA-Public Use
  Company Number: US-ENDO PHARMACEUTICALS INC.-2015-000743

PATIENT
  Age: 77 Year
  Sex: Male

DRUGS (1)
  1. METHYLPREDNISOLONE TABLETS 4MG [Suspect]
     Active Substance: METHYLPREDNISOLONE
     Indication: EAR CONGESTION
     Route: 065
     Dates: start: 20150424

REACTIONS (1)
  - Dizziness [Not Recovered/Not Resolved]

NARRATIVE: CASE EVENT DATE: 201504
